FAERS Safety Report 6779316-X (Version None)
Quarter: 2010Q2

REPORT INFORMATION
  Report Type: 
  Country: None (occurrence: None)
  Receive Date: 20100618
  Receipt Date: 20100607
  Transmission Date: 20101027
  Serious: Yes (Other)
  Sender: FDA-Public Use
  Company Number: PHHY2010IT37612

PATIENT
  Sex: Female

DRUGS (2)
  1. GLEEVEC [Suspect]
     Indication: CHRONIC MYELOID LEUKAEMIA
     Dosage: 400 MG/DAY
     Dates: start: 20020301
  2. GLEEVEC [Suspect]
     Dosage: UNK

REACTIONS (2)
  - ADENOID CYSTIC CARCINOMA [None]
  - NEOPLASM MALIGNANT [None]
